FAERS Safety Report 11186214 (Version 2)
Quarter: 2015Q3

REPORT INFORMATION
  Report Type: Spontaneous
  Country: IE (occurrence: IE)
  Receive Date: 20150612
  Receipt Date: 20150706
  Transmission Date: 20151125
  Serious: Yes (Other)
  Sender: FDA-Public Use
  Company Number: PHFR2015IE004468

PATIENT
  Age: 27 Year
  Sex: Male

DRUGS (1)
  1. TEGRETOL [Suspect]
     Active Substance: CARBAMAZEPINE
     Indication: SEIZURE
     Dosage: 1 DF, QD
     Route: 065

REACTIONS (7)
  - Urinary incontinence [Unknown]
  - Macule [Unknown]
  - Seizure [Unknown]
  - Fall [Unknown]
  - Loss of consciousness [Unknown]
  - Dark circles under eyes [Unknown]
  - Rash [Unknown]

NARRATIVE: CASE EVENT DATE: 20150610
